FAERS Safety Report 15708255 (Version 2)
Quarter: 2019Q1

REPORT INFORMATION
  Report Type: Spontaneous
  Country: US (occurrence: US)
  Receive Date: 20181211
  Receipt Date: 20190208
  Transmission Date: 20190417
  Serious: Yes (Hospitalization, Other)
  Sender: FDA-Public Use
  Company Number: US-PFIZER INC-2018508740

PATIENT
  Age: 64 Year
  Sex: Female

DRUGS (2)
  1. XELJANZ [Suspect]
     Active Substance: TOFACITINIB CITRATE
     Dosage: UNK (3 MONTHS OF DOSING)
  2. XELJANZ [Suspect]
     Active Substance: TOFACITINIB CITRATE
     Dosage: UNK

REACTIONS (8)
  - Facial bones fracture [Unknown]
  - Chills [Unknown]
  - Hand fracture [Unknown]
  - Drug ineffective [Unknown]
  - Pathogen resistance [Unknown]
  - Nephrolithiasis [Unknown]
  - Fall [Unknown]
  - Influenza like illness [Unknown]
